FAERS Safety Report 15354777 (Version 1)
Quarter: 2018Q4

REPORT INFORMATION
  Report Type: Spontaneous
  Country: PT (occurrence: PT)
  Receive Date: 20180906
  Receipt Date: 20180906
  Transmission Date: 20190204
  Serious: Yes (Other)
  Sender: FDA-Public Use
  Company Number: PT-AUROBINDO-AUR-APL-2018-044284

PATIENT
  Age: 99 Year
  Sex: Female

DRUGS (1)
  1. PHENYTOIN INJECTABLE SOLUTION [Suspect]
     Active Substance: PHENYTOIN
     Indication: STATUS EPILEPTICUS
     Dosage: 300 MILLIGRAM, UNK
     Route: 042

REACTIONS (1)
  - Drug ineffective [Recovered/Resolved]
